FAERS Safety Report 5734005-5 (Version None)
Quarter: 2008Q2

REPORT INFORMATION
  Report Type: 
  Country: None (occurrence: None)
  Receive Date: 20080509
  Receipt Date: 20080429
  Transmission Date: 20081010
  Serious: Yes (Hospitalization)
  Sender: FDA-Public Use
  Company Number: NL-ELI_LILLY_AND_COMPANY-NL200804007100

PATIENT
  Sex: Male

DRUGS (6)
  1. CYMBALTA [Suspect]
     Dosage: 60 MG, DAILY (1/D)
     Route: 048
     Dates: start: 20080310, end: 20080315
  2. TOLBUTAMIDE [Concomitant]
     Dosage: 500 MG, UNKNOWN
     Route: 065
  3. METFORMIN HCL [Concomitant]
     Dosage: 500 MG, UNKNOWN
     Route: 065
  4. HYDROCHLOROTHIAZIDE [Concomitant]
     Dosage: 12.5 MG, UNKNOWN
     Route: 065
  5. METOPROLOL TARTRATE [Concomitant]
     Dosage: 50 MG, UNKNOWN
     Route: 065
  6. ACETYLSALICYLIC ACID SRT [Concomitant]
     Dosage: 80 MG, UNKNOWN
     Route: 065

REACTIONS (1)
  - CEREBRAL HAEMORRHAGE [None]
